FAERS Safety Report 4545474-0 (Version None)
Quarter: 2005Q1

REPORT INFORMATION
  Report Type: 
  Country: None (occurrence: None)
  Receive Date: 20050105
  Receipt Date: 20041119
  Transmission Date: 20050727
  Serious: Yes (Life-Threatening, Hospitalization)
  Sender: FDA-Public Use
  Company Number: FR-MERCK-0411FRA00086

PATIENT
  Age: 77 Year
  Sex: Male

DRUGS (8)
  1. SINGULAIR [Suspect]
     Indication: RESPIRATORY DISORDER
     Route: 048
     Dates: start: 20041001, end: 20041004
  2. FUROSEMIDE [Concomitant]
     Route: 065
  3. FLUINDIONE [Concomitant]
     Route: 065
  4. LISINOPRIL [Concomitant]
     Route: 065
  5. ALBUTEROL SULFATE AND IPRATROPIUM BROMIDE [Concomitant]
     Route: 065
  6. BUDESONIDE AND FORMOTEROL FUMARATE [Concomitant]
     Route: 065
  7. PREDNISOLONE SODIUM METASULFOBENZOATE [Concomitant]
     Route: 065
  8. AMOXICILLIN AND CLAVULANATE POTASSIUM [Concomitant]
     Route: 065

REACTIONS (1)
  - RESPIRATORY DISTRESS [None]
